FAERS Safety Report 10663822 (Version 1)
Quarter: 2014Q4

REPORT INFORMATION
  Report Type: Spontaneous
  Country: US (occurrence: None)
  Receive Date: 20141218
  Receipt Date: 20141218
  Transmission Date: 20150529
  Serious: Yes (Hospitalization, Disabling)
  Sender: FDA-Public Use
  Company Number: None

PATIENT
  Age: 76 Year
  Sex: Female

DRUGS (2)
  1. ONE-A-DAY VITAMIN [Concomitant]
  2. ZOLOFT [Suspect]
     Active Substance: SERTRALINE HYDROCHLORIDE
     Indication: INITIAL INSOMNIA
     Route: 048
     Dates: start: 20140501

REACTIONS (25)
  - Muscle spasms [None]
  - Agitation [None]
  - Visual impairment [None]
  - Psychiatric symptom [None]
  - Feeling abnormal [None]
  - Abdominal pain upper [None]
  - Abulia [None]
  - Feeling guilty [None]
  - Skin discolouration [None]
  - Asthenia [None]
  - Tremor [None]
  - Confusional state [None]
  - Impatience [None]
  - Muscular weakness [None]
  - Insomnia [None]
  - Nervousness [None]
  - Memory impairment [None]
  - Irritability [None]
  - Dizziness [None]
  - Hyperhidrosis [None]
  - Fatigue [None]
  - Hostility [None]
  - Constipation [None]
  - Fall [None]
  - Dry mouth [None]

NARRATIVE: CASE EVENT DATE: 20140501
